FAERS Safety Report 8713431 (Version 2)
Quarter: 2013Q1

REPORT INFORMATION
  Report Type: Report from Study
  Country: DE (occurrence: DE)
  Receive Date: 20120808
  Receipt Date: 20130208
  Transmission Date: 20140127
  Serious: Yes (Hospitalization)
  Sender: FDA-Public Use
  Company Number: DE-JNJFOC-20120801147

PATIENT
  Age: 62 Year
  Sex: Female

DRUGS (7)
  1. SIMPONI [Suspect]
     Indication: RHEUMATOID ARTHRITIS
     Route: 058
     Dates: start: 201011, end: 201102
  2. CERTOLIZUMAB [Suspect]
     Indication: RHEUMATOID ARTHRITIS
     Dates: start: 201201, end: 20120516
  3. ARCOXIA [Concomitant]
     Dates: start: 201102
  4. OMEPRAZOLE [Concomitant]
     Dates: start: 201011
  5. EUTHYROX [Concomitant]
  6. METFORMIN [Concomitant]
  7. LODOTRA [Concomitant]
     Dates: start: 200203

REACTIONS (1)
  - Thyroid cancer recurrent [Unknown]
